FAERS Safety Report 5812738-X (Version None)
Quarter: 2008Q3

REPORT INFORMATION
  Report Type: 
  Country: None (occurrence: None)
  Receive Date: 20080714
  Receipt Date: 20080714
  Transmission Date: 20090109
  Serious: Yes (Hospitalization)
  Sender: FDA-Public Use
  Company Number: None

PATIENT
  Sex: Female
  Weight: 57 kg

DRUGS (4)
  1. BEVACIZUMAB [Suspect]
     Dosage: 1160 MG
     Dates: end: 20080422
  2. LEUCOVORIN CALCIUM [Suspect]
     Dosage: 2640 MG
  3. OXALIPLATIN [Suspect]
     Dosage: 470 MG
     Dates: end: 20080422
  4. FLUOROURACIL [Suspect]
     Dosage: 15720 MG
     Dates: end: 20080422

REACTIONS (3)
  - ENTEROVESICAL FISTULA [None]
  - FEMALE GENITAL TRACT FISTULA [None]
  - VAGINAL FISTULA [None]
